FAERS Safety Report 4778172-9 (Version None)
Quarter: 2005Q3

REPORT INFORMATION
  Report Type: 
  Country: None (occurrence: None)
  Receive Date: 20050922
  Receipt Date: 20050907
  Transmission Date: 20060218
  Serious: Yes (Hospitalization, Other)
  Sender: FDA-Public Use
  Company Number: 200511867BWH

PATIENT

DRUGS (4)
  1. TRASYLOL [Suspect]
     Dosage: SEE IMAGE
     Route: 042
     Dates: start: 20050101
  2. CARDIOPLEGIC [Suspect]
     Dosage: NI
     Dates: start: 20050101
  3. ASPIRIN [Concomitant]
  4. CLOPIDOGREL [Concomitant]

REACTIONS (10)
  - ANAPHYLACTIC REACTION [None]
  - BLOOD CREATININE INCREASED [None]
  - HYPOTENSION [None]
  - HYPOXIA [None]
  - PHARMACEUTICAL PRODUCT COMPLAINT [None]
  - POOR QUALITY DRUG ADMINISTERED [None]
  - POST PROCEDURAL COMPLICATION [None]
  - RASH ERYTHEMATOUS [None]
  - SYSTEMIC INFLAMMATORY RESPONSE SYNDROME [None]
  - THROMBOCYTOPENIA [None]
